FAERS Safety Report 6252334 (Version 5)
Quarter: 2013Q2

REPORT INFORMATION
  Report Type: Report from Study
  Country: SE (occurrence: SE)
  Receive Date: 20070302
  Receipt Date: 20130506
  Transmission Date: 20140414
  Serious: Yes (Death, Life-Threatening, Hospitalization)
  Sender: FDA-Public Use
  Company Number: SE-JNJFOC-20070206534

PATIENT
  Age: 73 Year
  Sex: Female

DRUGS (3)
  1. CAELYX [Suspect]
     Indication: BREAST CANCER METASTATIC
     Dosage: 20.0 MG/M2
     Route: 042
     Dates: start: 20061012, end: 20070118
  2. ATENOLOL [Concomitant]
     Indication: ARRHYTHMIA
     Route: 048
  3. ACETYLSALICYLIC ACID [Concomitant]
     Indication: ARRHYTHMIA
     Route: 048

REACTIONS (2)
  - Acute respiratory distress syndrome [Fatal]
  - Idiopathic pulmonary fibrosis [Not Recovered/Not Resolved]
